FAERS Safety Report 8453942-4 (Version None)
Quarter: 2012Q2

REPORT INFORMATION
  Report Type: 
  Country: None (occurrence: None)
  Receive Date: 20120620
  Receipt Date: 20120611
  Transmission Date: 20120825
  Serious: Yes (Hospitalization)
  Sender: FDA-Public Use
  Company Number: US-VERTEX PHARMACEUTICALS INC.-AE-2012-007695

PATIENT
  Sex: Female
  Weight: 88.45 kg

DRUGS (7)
  1. PROCARDIA XL [Concomitant]
  2. PEGASYS [Concomitant]
     Indication: HEPATITIS C
     Route: 058
     Dates: start: 20120507, end: 20120611
  3. INCIVEK [Suspect]
     Indication: HEPATITIS C
     Route: 048
     Dates: start: 20120507, end: 20120611
  4. PRILOSEC [Concomitant]
  5. RIBAVIRIN [Concomitant]
     Indication: HEPATITIS C
     Route: 048
     Dates: start: 20120507, end: 20120611
  6. CALCIUM [Concomitant]
     Indication: MEDICAL DIET
  7. LACTULOSE [Concomitant]

REACTIONS (11)
  - DEPRESSION [None]
  - IRRITABILITY [None]
  - VOMITING [None]
  - BLOOD POTASSIUM DECREASED [None]
  - SENSATION OF FOREIGN BODY [None]
  - CONSTIPATION [None]
  - PAIN IN EXTREMITY [None]
  - CHILLS [None]
  - WHITE BLOOD CELL COUNT DECREASED [None]
  - FATIGUE [None]
  - DECREASED APPETITE [None]
